FAERS Safety Report 24024091 (Version 6)
Quarter: 2024Q3

REPORT INFORMATION
  Report Type: Report from Study
  Country: TR (occurrence: TR)
  Receive Date: 20240627
  Receipt Date: 20240710
  Transmission Date: 20241016
  Serious: No
  Sender: ROCHE
  Company Number: TR-ROCHE-3074211

PATIENT
  Age: 48 Year
  Sex: Male

DRUGS (12)
  1. ALECTINIB [Suspect]
     Active Substance: ALECTINIB
     Indication: Non-small cell lung cancer metastatic
     Route: 048
     Dates: start: 20210118
  2. ALECTINIB [Suspect]
     Active Substance: ALECTINIB
     Route: 048
     Dates: start: 20210602
  3. LEVOPRONT [Concomitant]
     Indication: Cough
     Route: 048
     Dates: start: 20211207
  4. GERALGINE [Concomitant]
     Route: 048
     Dates: start: 20211207
  5. LEVOFLOXACIN [Concomitant]
     Active Substance: LEVOFLOXACIN
     Indication: Sinusitis bacterial
     Route: 048
     Dates: start: 20211125, end: 20211208
  6. LEVOFLOXACIN [Concomitant]
     Active Substance: LEVOFLOXACIN
     Indication: Bronchitis chronic
  7. DEXKETOPROFEN [Concomitant]
     Active Substance: DEXKETOPROFEN
     Dosage: FREQUENCY TEXT:PRN
     Route: 048
     Dates: start: 20211125
  8. SPIRIVA [Concomitant]
     Active Substance: TIOTROPIUM BROMIDE MONOHYDRATE
     Indication: Bronchitis chronic
     Dosage: 36 UG
     Route: 055
     Dates: start: 20211214, end: 20211230
  9. SPIRIVA [Concomitant]
     Active Substance: TIOTROPIUM BROMIDE MONOHYDRATE
     Dosage: 36 UG
     Route: 055
     Dates: start: 20211231
  10. VENTOLIN [Concomitant]
     Active Substance: ALBUTEROL SULFATE
     Indication: Asthma
     Dosage: 100 UG
     Route: 055
     Dates: start: 20211214, end: 20211230
  11. VENTOLIN [Concomitant]
     Active Substance: ALBUTEROL SULFATE
     Dosage: 100 UG
     Route: 055
     Dates: start: 20211231
  12. LEVOFLOKSASIN [Concomitant]
     Indication: Bronchitis
     Route: 048
     Dates: start: 20211214, end: 20211220

REACTIONS (1)
  - Dizziness [Recovered/Resolved]

NARRATIVE: CASE EVENT DATE: 20210602
